FAERS Safety Report 4440071-X (Version None)
Quarter: 2004Q3

REPORT INFORMATION
  Report Type: 
  Country: None (occurrence: None)
  Receive Date: 20040902
  Receipt Date: 20040812
  Transmission Date: 20050211
  Serious: Yes (Hospitalization, Disabling)
  Sender: FDA-Public Use
  Company Number: CH-GLAXOSMITHKLINE-B0342857A

PATIENT
  Age: 66 Year
  Sex: Male

DRUGS (6)
  1. AUGMENTIN '125' [Suspect]
     Indication: TOXIC SHOCK SYNDROME
     Dosage: 2.2G THREE TIMES PER DAY
     Dates: start: 20040309, end: 20040318
  2. VOLUVEN [Suspect]
     Indication: TOXIC SHOCK SYNDROME
     Dosage: 6.5L PER DAY
     Route: 051
     Dates: start: 20040310, end: 20040316
  3. TAZOBAC [Suspect]
     Indication: TOXIC SHOCK SYNDROME
     Dosage: 2.5G THREE TIMES PER DAY
     Dates: start: 20040309, end: 20040309
  4. CLINDAMYCIN HCL [Suspect]
     Indication: TOXIC SHOCK SYNDROME
     Dosage: 900MG FOUR TIMES PER DAY
     Dates: start: 20040309, end: 20040326
  5. DOBUTREX [Suspect]
     Indication: HYPOTENSION
     Dates: start: 20040101, end: 20040301
  6. PARACETAMOL [Suspect]
     Indication: TOXIC SHOCK SYNDROME
     Dosage: 1G FOUR TIMES PER DAY
     Dates: start: 20040309, end: 20040317

REACTIONS (4)
  - NEPHRITIS INTERSTITIAL [None]
  - NEPHROTIC SYNDROME [None]
  - RENAL IMPAIRMENT [None]
  - RENAL TUBULAR NECROSIS [None]
